FAERS Safety Report 7306664-7 (Version None)
Quarter: 2011Q1

REPORT INFORMATION
  Report Type: 
  Country: None (occurrence: None)
  Receive Date: 20110222
  Receipt Date: 20110209
  Transmission Date: 20110831
  Serious: Yes (Death, Life-Threatening, Hospitalization, Other)
  Sender: FDA-Public Use
  Company Number: FR-CELGENEUS-056-20785-10040871

PATIENT
  Sex: Female
  Weight: 43 kg

DRUGS (11)
  1. THALIDOMIDE [Suspect]
     Route: 048
     Dates: start: 20050518
  2. THALIDOMIDE [Suspect]
     Route: 048
     Dates: end: 20100311
  3. COLCHICINE [Concomitant]
     Route: 048
     Dates: start: 20010101
  4. NEXIUM [Concomitant]
     Route: 065
  5. THALIDOMIDE [Suspect]
     Route: 048
     Dates: start: 20060201
  6. LAROXYL [Concomitant]
     Route: 065
  7. OXYCONTIN [Concomitant]
     Route: 065
  8. OFLOXACIN [Concomitant]
     Route: 065
  9. SPASFON LYOC [Concomitant]
     Route: 065
  10. TRIFLUCAN [Concomitant]
     Route: 065
  11. THALIDOMIDE [Suspect]
     Route: 048
     Dates: start: 19990101, end: 20100311

REACTIONS (3)
  - ADENOCARCINOMA OF THE CERVIX [None]
  - BEHCET'S SYNDROME [None]
  - NEUROPATHY PERIPHERAL [None]
